FAERS Safety Report 9757118 (Version 1)
Quarter: 2013Q4

REPORT INFORMATION
  Report Type: Spontaneous
  Country: GB (occurrence: GB)
  Receive Date: 20131213
  Receipt Date: 20131213
  Transmission Date: 20140711
  Serious: Yes (Hospitalization)
  Sender: FDA-Public Use
  Company Number: GB-JHP PHARMACEUTICALS, LLC-JHP201300757

PATIENT
  Sex: Female

DRUGS (1)
  1. DANTRIUM [Suspect]
     Dosage: 25 MG, UNK

REACTIONS (3)
  - Off label use [Unknown]
  - Hospitalisation [Unknown]
  - Drug dose omission [Unknown]
